FAERS Safety Report 5260271-9 (Version None)
Quarter: 2007Q1

REPORT INFORMATION
  Report Type: 
  Country: None (occurrence: None)
  Receive Date: 20070309
  Receipt Date: 20060614
  Transmission Date: 20070707
  Serious: No
  Sender: FDA-Public Use
  Company Number: US-GLAXOSMITHKLINE-A0608768A

PATIENT
  Age: 63 Year
  Sex: Female

DRUGS (2)
  1. EQUATE NICOTINE GUM 2MG [Suspect]
     Dates: start: 20060601, end: 20060611
  2. NICODERM CQ [Suspect]
     Dates: start: 20060601

REACTIONS (3)
  - DYSGEUSIA [None]
  - GINGIVAL BLEEDING [None]
  - INTENTIONAL DRUG MISUSE [None]
